FAERS Safety Report 10551428 (Version 1)
Quarter: 2014Q4

REPORT INFORMATION
  Report Type: Spontaneous
  Country: US (occurrence: None)
  Receive Date: 20141028
  Receipt Date: 20141028
  Transmission Date: 20150529
  Serious: Yes (Hospitalization)
  Sender: FDA-Public Use
  Company Number: None

PATIENT
  Age: 76 Year
  Sex: Male
  Weight: 93 kg

DRUGS (6)
  1. DIVALPROEX ER [Suspect]
     Active Substance: DIVALPROEX SODIUM
     Indication: EPILEPSY
     Route: 048
     Dates: start: 20141008, end: 20141010
  2. DIVALPROEX ER [Suspect]
     Active Substance: DIVALPROEX SODIUM
     Indication: MIGRAINE
     Route: 048
     Dates: start: 20141008, end: 20141010
  3. MIRTAZAPIUNE [Concomitant]
  4. ACETAMINOPHEN CODEINE [Suspect]
     Active Substance: ACETAMINOPHEN\CODEINE PHOSPHATE
     Indication: BACK PAIN
     Route: 048
     Dates: start: 20141008, end: 20141010
  5. LACOSAMIDE [Concomitant]
     Active Substance: LACOSAMIDE
  6. DIVALPROEX ER [Suspect]
     Active Substance: DIVALPROEX SODIUM
     Indication: GLIOMA
     Route: 048
     Dates: start: 20141008, end: 20141010

REACTIONS (2)
  - Fatigue [None]
  - Asthenia [None]

NARRATIVE: CASE EVENT DATE: 20141010
